FAERS Safety Report 5854666-X (Version None)
Quarter: 2008Q3

REPORT INFORMATION
  Report Type: 
  Country: None (occurrence: None)
  Receive Date: 20080822
  Receipt Date: 20080812
  Transmission Date: 20090109
  Serious: Yes (Death, Hospitalization)
  Sender: FDA-Public Use
  Company Number: FR-PFIZER INC-2008067697

PATIENT
  Age: 52 Year
  Sex: Female

DRUGS (7)
  1. METHYLPREDNISOLONE SODIUM SUCCINATE [Suspect]
     Route: 042
  2. PEGFILGRASTIM [Suspect]
     Indication: BREAST CANCER
     Route: 058
     Dates: start: 20070922, end: 20070922
  3. DOCETAXEL [Suspect]
     Indication: BREAST CANCER
     Dates: start: 20070921, end: 20070921
  4. ONDANSETRON [Suspect]
  5. FLUOROURACIL [Concomitant]
  6. EPIRUBICIN HYDROCHLORIDE [Concomitant]
  7. CYCLOPHOSPHAMIDE [Concomitant]

REACTIONS (4)
  - RHABDOMYOLYSIS [None]
  - SKIN DISCOLOURATION [None]
  - TONGUE OEDEMA [None]
  - TOXIC SHOCK SYNDROME STAPHYLOCOCCAL [None]
